FAERS Safety Report 4984122-2 (Version None)
Quarter: 2006Q1

REPORT INFORMATION
  Report Type: 
  Country: None (occurrence: None)
  Receive Date: 20060303
  Receipt Date: 20060103
  Transmission Date: 20060701
  Serious: Yes (Other)
  Sender: FDA-Public Use
  Company Number: HQWYE243706JAN06

PATIENT
  Age: 32 Year
  Sex: Female
  Weight: 63.56 kg

DRUGS (5)
  1. ALAVERT D-12 (LORATADINE/PSEUDOEPHERINE SULFATE, TABLET, EXTENDED RELE [Suspect]
     Indication: NASAL CONGESTION
     Dosage: 1 TAB DAILY AS NEEDED, ORAL
     Route: 048
     Dates: start: 20050101, end: 20060101
  2. ALAVERT D-12 (LORATADINE/PSEUDOEPHERINE SULFATE, TABLET, EXTENDED RELE [Suspect]
     Indication: RHINORRHOEA
     Dosage: 1 TAB DAILY AS NEEDED, ORAL
     Route: 048
     Dates: start: 20050101, end: 20060101
  3. ALAVERT D-12 (LORATADINE/PSEUDOEPHERINE SULFATE, TABLET, EXTENDED RELE [Suspect]
     Indication: SINUS HEADACHE
     Dosage: 1 TAB DAILY AS NEEDED, ORAL
     Route: 048
     Dates: start: 20050101, end: 20060101
  4. ALAVERT D-12 (LORATADINE/PSEUDOEPHERINE SULFATE, TABLET, EXTENDED RELE [Suspect]
     Indication: SNEEZING
     Dosage: 1 TAB DAILY AS NEEDED, ORAL
     Route: 048
     Dates: start: 20050101, end: 20060101
  5. UNSPECIFIED THYROID MEDICATION (UNSPECIFIED THYROID MEDICATION) [Concomitant]

REACTIONS (2)
  - BACK PAIN [None]
  - RESTLESSNESS [None]
